FAERS Safety Report 5246623-1 (Version None)
Quarter: 2007Q1

REPORT INFORMATION
  Report Type: 
  Country: None (occurrence: None)
  Receive Date: 20070220
  Receipt Date: 20070208
  Transmission Date: 20070707
  Serious: Yes (Other)
  Sender: FDA-Public Use
  Company Number: 15662

PATIENT
  Age: 15 Year
  Sex: Female

DRUGS (8)
  1. CEFUROXIME [Suspect]
     Indication: NAUSEA
     Dosage: NI IV
     Route: 042
  2. CEFUROXIME [Suspect]
     Indication: PROPHYLAXIS
     Dosage: NI IV
     Route: 042
  3. CEFUROXIME [Suspect]
     Indication: VOMITING
     Dosage: NI IV
     Route: 042
  4. ONDANSETRON [Suspect]
     Indication: NAUSEA
  5. PROMETHAZINE [Suspect]
     Indication: VOMITING
  6. CIPROFLOXACIN [Concomitant]
  7. SULFAMETHOXAZOLE WITH TRIMETHOPRIM [Concomitant]
  8. IBUPROFEN [Concomitant]

REACTIONS (4)
  - HAEMODIALYSIS [None]
  - NEPHRITIS INTERSTITIAL [None]
  - RENAL FAILURE ACUTE [None]
  - URINARY TRACT INFECTION [None]
